FAERS Safety Report 23050439 (Version 2)
Quarter: 2023Q4

REPORT INFORMATION
  Report Type: Spontaneous
  Country: US (occurrence: US)
  Receive Date: 20231010
  Receipt Date: 20231206
  Transmission Date: 20240110
  Serious: No
  Sender: FDA-Public Use
  Company Number: US-PFIZER INC-202300321102

PATIENT
  Age: 61 Year
  Sex: Male

DRUGS (17)
  1. XELJANZ [Suspect]
     Active Substance: TOFACITINIB CITRATE
     Dosage: 5 MG, 2X/DAY
     Route: 048
     Dates: start: 202309
  2. IBUPROFEN [Concomitant]
     Active Substance: IBUPROFEN
  3. ACETAMINOPHEN [Concomitant]
     Active Substance: ACETAMINOPHEN
  4. PREDNISONE [Concomitant]
     Active Substance: PREDNISONE
  5. MONTELUKAST SODIUM [Concomitant]
     Active Substance: MONTELUKAST SODIUM
  6. LYRICA [Concomitant]
     Active Substance: PREGABALIN
  7. ADENOSINE [Concomitant]
     Active Substance: ADENOSINE
  8. METOCLOPRAMIDE [Concomitant]
     Active Substance: METOCLOPRAMIDE
  9. SUCRALFATE [Concomitant]
     Active Substance: SUCRALFATE
  10. ATIVAN [Concomitant]
     Active Substance: LORAZEPAM
  11. PANTOPRAZOLE [Concomitant]
     Active Substance: PANTOPRAZOLE
  12. AMLODIPINE BESYLATE [Concomitant]
     Active Substance: AMLODIPINE BESYLATE
  13. BACTRIM [Concomitant]
     Active Substance: SULFAMETHOXAZOLE\TRIMETHOPRIM
  14. STELARA [Concomitant]
     Active Substance: USTEKINUMAB
  15. QNASL [Concomitant]
     Active Substance: BECLOMETHASONE DIPROPIONATE
  16. OTEZLA [Concomitant]
     Active Substance: APREMILAST
  17. TOPROL XL [Concomitant]
     Active Substance: METOPROLOL SUCCINATE

REACTIONS (2)
  - Pain [Unknown]
  - Pain in extremity [Unknown]
